FAERS Safety Report 9433888 (Version 2)
Quarter: 2017Q2

REPORT INFORMATION
  Report Type: Spontaneous
  Country: GB (occurrence: GB)
  Receive Date: 20130801
  Receipt Date: 20170504
  Transmission Date: 20170830
  Serious: Yes (Congenital Anomaly)
  Sender: FDA-Public Use
  Company Number: PHHY2013GB079195

PATIENT

DRUGS (6)
  1. OLANZAPINE. [Suspect]
     Active Substance: OLANZAPINE
     Dosage: MATERNAL DOSE: 15 MG QD
     Route: 064
  2. SUBUTEX [Suspect]
     Active Substance: BUPRENORPHINE HYDROCHLORIDE
     Dosage: MATERNAL DOSE: 14 MG QD
     Route: 064
  3. DIAZEPAM. [Suspect]
     Active Substance: DIAZEPAM
     Dosage: MATERNAL DOSE: 10 MG TID
     Route: 064
  4. OMEPRAZOLE. [Suspect]
     Active Substance: OMEPRAZOLE
     Dosage: MATERNAL DOSE: 30 MG
     Route: 064
  5. PREGABALIN. [Suspect]
     Active Substance: PREGABALIN
     Dosage: MATERNAL DOSE: 300 MG BID
     Route: 064
  6. ZOPICLONE [Suspect]
     Active Substance: ZOPICLONE
     Dosage: MATERNAL DOSE: 15 MG QD
     Route: 064

REACTIONS (5)
  - Congenital scoliosis [Not Recovered/Not Resolved]
  - Single functional kidney [Not Recovered/Not Resolved]
  - Foetal malformation [Not Recovered/Not Resolved]
  - Limb reduction defect [Not Recovered/Not Resolved]
  - Foetal exposure during pregnancy [Unknown]

NARRATIVE: CASE EVENT DATE: 20130705
